FAERS Safety Report 19690502 (Version 2)
Quarter: 2021Q3

REPORT INFORMATION
  Report Type: Report from Study
  Country: None (occurrence: CA)
  Receive Date: 20210812
  Receipt Date: 20210901
  Transmission Date: 20211014
  Serious: Yes (Other)
  Sender: FDA-Public Use
  Company Number: CA-ABBVIE-21K-028-4033083-00

PATIENT
  Age: 59 Year
  Sex: Female
  Weight: 68.1 kg

DRUGS (1)
  1. HUMIRA [Suspect]
     Active Substance: ADALIMUMAB
     Indication: CROHN^S DISEASE
     Route: 058
     Dates: start: 20190717

REACTIONS (3)
  - Intestinal stenosis [Recovered/Resolved]
  - Ileal stenosis [Unknown]
  - Gastrointestinal scarring [Not Recovered/Not Resolved]

NARRATIVE: CASE EVENT DATE: 20210415
